FAERS Safety Report 13356004 (Version 2)
Quarter: 2017Q2

REPORT INFORMATION
  Report Type: Spontaneous
  Country: DE (occurrence: DE)
  Receive Date: 20170321
  Receipt Date: 20170505
  Transmission Date: 20170830
  Serious: Yes (Other)
  Sender: FDA-Public Use
  Company Number: ALCN2017DE001970

PATIENT
  Age: 63 Year
  Sex: Female

DRUGS (5)
  1. PREDNISOLON AL [Concomitant]
     Indication: PRODUCT USED FOR UNKNOWN INDICATION
     Dosage: 20 MG, UNK
     Route: 065
  2. TOBRADEX [Suspect]
     Active Substance: DEXAMETHASONE\TOBRAMYCIN
     Dosage: 1 GTT, TID
     Route: 047
     Dates: start: 20170306, end: 20170310
  3. TAFLOTAN [Concomitant]
     Active Substance: TAFLUPROST
     Indication: INTRAOCULAR PRESSURE INCREASED
     Dosage: 1 GTT, UNK
     Route: 047
     Dates: start: 20170306, end: 20170420
  4. TOBRADEX [Suspect]
     Active Substance: DEXAMETHASONE\TOBRAMYCIN
     Indication: POSTOPERATIVE CARE
     Dosage: 1 GTT, 5QD
     Route: 047
     Dates: start: 20170302, end: 20170305
  5. SYSTANE HYDRATION [Concomitant]
     Indication: SJOGREN^S SYNDROME
     Dosage: (1 TO 2 GTT)
     Route: 047
     Dates: start: 20170306

REACTIONS (5)
  - Tinnitus [Unknown]
  - Deafness transitory [Not Recovered/Not Resolved]
  - Deafness unilateral [Unknown]
  - Hypoaesthesia [Not Recovered/Not Resolved]
  - Headache [Unknown]

NARRATIVE: CASE EVENT DATE: 201703
